FAERS Safety Report 9832365 (Version 2)
Quarter: 2014Q1

REPORT INFORMATION
  Report Type: Spontaneous
  Country: US (occurrence: US)
  Receive Date: 20140121
  Receipt Date: 20140121
  Transmission Date: 20141002
  Serious: Yes (Hospitalization)
  Sender: FDA-Public Use
  Company Number: US-BAXTER-2014BAX001140

PATIENT
  Sex: Female

DRUGS (6)
  1. DIANEAL LOW CALCIUM [Suspect]
     Indication: PERITONEAL DIALYSIS
     Route: 033
  2. DIANEAL LOW CALCIUM [Suspect]
     Route: 033
     Dates: start: 20140108
  3. DIANEAL LOW CALCIUM [Suspect]
     Indication: PERITONEAL DIALYSIS
     Route: 033
  4. DIANEAL LOW CALCIUM [Suspect]
     Route: 033
     Dates: start: 20140108
  5. EXTRANEAL [Suspect]
     Indication: PERITONEAL DIALYSIS
     Route: 033
  6. EXTRANEAL [Suspect]
     Route: 033
     Dates: start: 20140108

REACTIONS (1)
  - Gallbladder disorder [Recovered/Resolved]
